FAERS Safety Report 6172191-6 (Version None)
Quarter: 2009Q2

REPORT INFORMATION
  Report Type: 
  Country: None (occurrence: None)
  Receive Date: 20090429
  Receipt Date: 20081119
  Transmission Date: 20091009
  Serious: No
  Sender: FDA-Public Use
  Company Number: A0757240A

PATIENT
  Age: 39 Year
  Sex: Female

DRUGS (1)
  1. ONDANSETRON [Suspect]
     Dosage: 8MG AS REQUIRED
     Route: 048
     Dates: start: 20081114, end: 20081117

REACTIONS (2)
  - ABDOMINAL PAIN [None]
  - CONSTIPATION [None]
